FAERS Safety Report 4707352-3 (Version None)
Quarter: 2005Q3

REPORT INFORMATION
  Report Type: 
  Country: None (occurrence: None)
  Receive Date: 20050701
  Receipt Date: 20050701
  Transmission Date: 20060218
  Serious: Yes (Hospitalization, Other)
  Sender: FDA-Public Use
  Company Number: None

PATIENT
  Sex: Male
  Weight: 105.2 kg

DRUGS (13)
  1. PACLITAXEL 50 MG/M2 IV (DAY 1,8,15) [Suspect]
     Dosage: 50 MG/M2 IV (DAY 1,8,15)
     Route: 042
     Dates: start: 20050531, end: 20050531
  2. CISPLATIN [Suspect]
     Dosage: 15 MG/M2, IV (DAY 1,2,3,8,9,10, 15, 16, 17)
     Route: 042
     Dates: start: 20050531, end: 20050602
  3. RADIATION [Suspect]
     Dosage: BID X 13 DAYS
  4. ASPIRIN [Concomitant]
  5. ATENOLOL [Concomitant]
  6. BENADRYL [Concomitant]
  7. FOSAMAX [Concomitant]
  8. MULTI-VITAMIN [Concomitant]
  9. SYNTHROID [Concomitant]
  10. TERAZOSIN HCL [Concomitant]
  11. ZANTAC [Concomitant]
  12. ZOFRAN [Concomitant]
  13. DECADRON [Concomitant]

REACTIONS (2)
  - DRUG TOXICITY [None]
  - RENAL FAILURE ACUTE [None]
